FAERS Safety Report 9283647 (Version 1)
Quarter: 2013Q2

REPORT INFORMATION
  Report Type: Spontaneous
  Country: US (occurrence: US)
  Receive Date: 20130510
  Receipt Date: 20130510
  Transmission Date: 20140414
  Serious: Yes (Hospitalization)
  Sender: FDA-Public Use
  Company Number: US-GLAXOSMITHKLINE-A0774069A

PATIENT
  Age: 62 Year
  Sex: Male

DRUGS (1)
  1. AVANDIA [Suspect]
     Indication: TYPE 2 DIABETES MELLITUS
     Route: 048
     Dates: start: 20011221, end: 20021124

REACTIONS (5)
  - Cerebrovascular accident [Unknown]
  - Amnesia [Unknown]
  - Motor dysfunction [Unknown]
  - Anxiety [Unknown]
  - Depression [Unknown]
